FAERS Safety Report 9419861 (Version 2)
Quarter: 2013Q3

REPORT INFORMATION
  Report Type: Report from Study
  Country: JP (occurrence: JP)
  Receive Date: 20130725
  Receipt Date: 20130807
  Transmission Date: 20140515
  Serious: Yes (Other)
  Sender: FDA-Public Use
  Company Number: JP-VERTEX PHARMACEUTICALS INC-AE-2012-007474

PATIENT
  Age: 62 Year
  Sex: Female

DRUGS (18)
  1. VX-950 (TELAPREVIR) [Suspect]
     Indication: CHRONIC HEPATITIS C
     Dosage: 1500 MG, QD
     Route: 048
     Dates: start: 20120510
  2. VX-950 (TELAPREVIR) [Suspect]
     Dosage: 1500 MG, QD
     Route: 048
     Dates: start: 20120606
  3. RIBAVIRIN [Suspect]
     Indication: CHRONIC HEPATITIS C
     Dosage: 400 MG, QD
     Route: 048
     Dates: start: 20120510
  4. RIBAVIRIN [Suspect]
     Dosage: 400 MG, QD
     Route: 048
     Dates: start: 20120606, end: 20120703
  5. RIBAVIRIN [Suspect]
     Dosage: 200 MG, QD
     Route: 048
     Dates: start: 20120704, end: 20120717
  6. RIBAVIRIN [Suspect]
     Dosage: 400 MG, QD
     Route: 048
     Dates: start: 20120718, end: 20121024
  7. PEGINTERFERON ALFA-2B [Concomitant]
     Dosage: 1.41 ?G/KG, QW
     Route: 058
     Dates: start: 20120510
  8. PEGINTERFERON ALFA-2B [Concomitant]
     Dosage: 1.8 ?G/KG, UNK
     Route: 058
     Dates: start: 20120606
  9. ALEROFF [Concomitant]
     Dosage: 20 MG, QD
     Route: 048
     Dates: start: 20120413, end: 20120510
  10. FENILENE [Concomitant]
     Dosage: 150 MG, QD
     Route: 048
     Dates: start: 20120418, end: 201204
  11. SELTEPNON [Concomitant]
     Dosage: 150 MG, QD
     Route: 048
     Dates: start: 20120418
  12. EPINEPHRINE HYDROCHLORIDE [Concomitant]
     Dosage: 20 MG, QD
     Route: 048
     Dates: start: 20120511
  13. MYSER OINTMENT 0.05% [Concomitant]
     Dosage: UNK UNK, QD
     Route: 061
     Dates: start: 20120514
  14. PREDONINE [Concomitant]
     Dosage: 20 MG, QD
     Route: 048
     Dates: start: 20120515, end: 20120523
  15. URSO [Concomitant]
     Dosage: 600 MG, QD
     Route: 048
     Dates: end: 20120425
  16. KINDAVATE [Concomitant]
     Route: 061
  17. FERROMIA [Concomitant]
  18. SELBEX [Concomitant]
     Route: 048

REACTIONS (1)
  - Rash [Unknown]
